FAERS Safety Report 16985614 (Version 1)
Quarter: 2019Q4

REPORT INFORMATION
  Report Type: Spontaneous
  Country: US (occurrence: US)
  Receive Date: 20191101
  Receipt Date: 20191101
  Transmission Date: 20200122
  Serious: Yes (Death)
  Sender: FDA-Public Use
  Company Number: US-ARRAY-2019-06473

PATIENT

DRUGS (6)
  1. MEKTOVI [Suspect]
     Active Substance: BINIMETINIB
     Indication: METASTASES TO THE RESPIRATORY SYSTEM
     Dosage: 45 MG, BID
     Route: 048
     Dates: start: 20190809
  2. MEKTOVI [Suspect]
     Active Substance: BINIMETINIB
     Indication: GASTROINTESTINAL CANCER METASTATIC
  3. BRAFTOVI [Suspect]
     Active Substance: ENCORAFENIB
     Indication: METASTASES TO THE RESPIRATORY SYSTEM
     Dosage: 300 MG, QD
     Route: 048
     Dates: start: 20190809
  4. BRAFTOVI [Suspect]
     Active Substance: ENCORAFENIB
     Indication: GASTROINTESTINAL CANCER METASTATIC
  5. BRAFTOVI [Suspect]
     Active Substance: ENCORAFENIB
     Indication: COLON CANCER
  6. MEKTOVI [Suspect]
     Active Substance: BINIMETINIB
     Indication: COLON CANCER

REACTIONS (3)
  - Disease progression [Unknown]
  - Death [Fatal]
  - Product use in unapproved indication [Unknown]

NARRATIVE: CASE EVENT DATE: 20190809
